FAERS Safety Report 10450462 (Version 3)
Quarter: 2014Q3

REPORT INFORMATION
  Report Type: Spontaneous
  Country: JP (occurrence: JP)
  Receive Date: 20140912
  Receipt Date: 20140919
  Transmission Date: 20150326
  Serious: Yes (Hospitalization)
  Sender: FDA-Public Use
  Company Number: JP-DSJP-DSJ-2014-06018

PATIENT

DRUGS (10)
  1. ADALAT CC [Concomitant]
     Active Substance: NIFEDIPINE
     Indication: HYPERTENSION
     Dosage: 40 MG, BID
     Route: 048
     Dates: start: 20120606
  2. OLMETEC [Suspect]
     Active Substance: OLMESARTAN MEDOXOMIL
     Indication: HYPERTENSION
     Dosage: 20 MG, QD
     Route: 048
     Dates: start: 20120606, end: 20121218
  3. OLMETEC [Suspect]
     Active Substance: OLMESARTAN MEDOXOMIL
     Dosage: 40 MG, QD
     Dates: start: 20121219, end: 20140227
  4. ALOSITOL [Concomitant]
     Active Substance: ALLOPURINOL
     Indication: HYPERURICAEMIA
     Dosage: 200 MG, BID
     Route: 048
  5. BAYASPIRIN [Concomitant]
     Active Substance: ASPIRIN
     Indication: ARTERIOSCLEROSIS CORONARY ARTERY
     Dosage: 100 MG, QD
     Route: 048
     Dates: start: 20120321
  6. TAKEPRON [Concomitant]
     Active Substance: LANSOPRAZOLE
     Indication: DUODENAL ULCER
  7. LIVALO [Concomitant]
     Active Substance: PITAVASTATIN CALCIUM
     Indication: HYPERCHOLESTEROLAEMIA
     Dosage: 2 MG, QD
     Route: 048
     Dates: start: 20120330
  8. ARTIST TABLETS 10MG [Concomitant]
     Indication: HYPERTENSION
     Dosage: 10 MG, QD
     Route: 048
     Dates: start: 20120801
  9. TAKEPRON [Concomitant]
     Active Substance: LANSOPRAZOLE
     Indication: GASTRIC ULCER
     Dosage: 15 MG, QD
     Route: 048
     Dates: start: 20120321, end: 20140212
  10. FERROMIA                           /00023520/ [Concomitant]
     Indication: IRON DEFICIENCY ANAEMIA
     Dosage: 50 MG, QD
     Route: 048

REACTIONS (6)
  - Malabsorption [Recovered/Resolved]
  - Dehydration [Recovering/Resolving]
  - Weight decreased [Unknown]
  - Diarrhoea [Recovering/Resolving]
  - Prerenal failure [Recovering/Resolving]
  - Gastrointestinal disorder [Unknown]

NARRATIVE: CASE EVENT DATE: 201312
